FAERS Safety Report 19482700 (Version 1)
Quarter: 2021Q3

REPORT INFORMATION
  Report Type: Report from Study
  Country: US (occurrence: US)
  Receive Date: 20210701
  Receipt Date: 20210701
  Transmission Date: 20211014
  Serious: No
  Sender: FDA-Public Use
  Company Number: NVSC2021US141518

PATIENT
  Age: 68 Year
  Sex: Male

DRUGS (1)
  1. GILENYA [Suspect]
     Active Substance: FINGOLIMOD HYDROCHLORIDE
     Indication: MULTIPLE SCLEROSIS
     Dosage: 0.5 MG (EVERY OTHER DAY)
     Route: 048
     Dates: start: 20111209

REACTIONS (2)
  - White blood cell disorder [Unknown]
  - Off label use [Unknown]

NARRATIVE: CASE EVENT DATE: 20210201
